FAERS Safety Report 9614230 (Version 1)
Quarter: 2013Q4

REPORT INFORMATION
  Report Type: Spontaneous
  Country: FR (occurrence: FR)
  Receive Date: 20131011
  Receipt Date: 20131011
  Transmission Date: 20140711
  Serious: Yes (Hospitalization)
  Sender: FDA-Public Use
  Company Number: FR-009507513-1310FRA001175

PATIENT
  Age: 85 Year
  Sex: Female

DRUGS (9)
  1. FOSAVANCE [Suspect]
     Indication: OSTEOPOROSIS
     Dosage: UNK
     Route: 048
  2. COUMADIN [Suspect]
     Indication: ATRIAL FIBRILLATION
     Dosage: UNK
     Route: 048
     Dates: start: 20130523, end: 20130530
  3. AUGMENTIN [Suspect]
     Indication: LUNG DISORDER
     Dosage: 3 G, QD
     Route: 048
     Dates: start: 20130523, end: 20130601
  4. CORDARONE [Suspect]
     Indication: ATRIAL FIBRILLATION
     Dosage: 1 DF, QD
     Route: 048
     Dates: start: 20130523
  5. SPIRIVA [Concomitant]
     Dosage: UNK
     Route: 055
  6. SERETIDE [Concomitant]
     Dosage: 1 DF, BID
     Route: 055
  7. MELAXOSE [Concomitant]
     Route: 048
  8. UVEDOSE [Concomitant]
     Dosage: UNK
     Route: 048
  9. LASILIX [Concomitant]
     Dosage: 1 DF, QD
     Route: 048
     Dates: start: 201306

REACTIONS (4)
  - Rectal haemorrhage [Recovered/Resolved]
  - Anaemia [Recovered/Resolved]
  - Melaena [Recovered/Resolved]
  - Duodenal ulcer [Recovered/Resolved]
